FAERS Safety Report 9988669 (Version 1)
Quarter: 2014Q1

REPORT INFORMATION
  Report Type: Spontaneous
  Country: US (occurrence: US)
  Receive Date: 20140310
  Receipt Date: 20140310
  Transmission Date: 20141002
  Serious: Yes (Other)
  Sender: FDA-Public Use
  Company Number: US-BEH-2013039800

PATIENT
  Sex: Male
  Weight: 96 kg

DRUGS (22)
  1. HIZENTRA [Suspect]
     Indication: IMMUNODEFICIENCY COMMON VARIABLE
     Route: 058
  2. HIZENTRA [Suspect]
     Indication: HYPOGAMMAGLOBULINAEMIA
     Route: 058
  3. TAMIFLU [Concomitant]
  4. MINOCYCLINE [Concomitant]
  5. PLAQUENIL [Concomitant]
  6. PREDNISONE [Concomitant]
  7. AMLODIPINE [Concomitant]
  8. FOLIC ACID [Concomitant]
  9. HYDROCHLOROTHIAZIDE [Concomitant]
  10. CRESTOR [Concomitant]
  11. BETAPACE [Concomitant]
  12. VITAMIN B12 [Concomitant]
  13. DIPHENHYDRAMINE [Concomitant]
  14. EPI-PEN [Concomitant]
  15. LMX [Concomitant]
  16. COREG [Concomitant]
  17. CALCIUM+VITAMIN D [Concomitant]
  18. PLAVIX [Concomitant]
  19. ZETIA [Concomitant]
  20. MULTIVITAMIN [Concomitant]
  21. PEPCID [Concomitant]
  22. ASPIRIN [Concomitant]

REACTIONS (2)
  - Renal impairment [Unknown]
  - Glomerular filtration rate increased [Unknown]
